FAERS Safety Report 13921667 (Version 1)
Quarter: 2017Q3

REPORT INFORMATION
  Report Type: Spontaneous
  Country: US (occurrence: US)
  Receive Date: 20170830
  Receipt Date: 20170830
  Transmission Date: 20171127
  Serious: No
  Sender: FDA-Public Use
  Company Number: US-EISAI MEDICAL RESEARCH-EC-2017-030504

PATIENT
  Sex: Female

DRUGS (2)
  1. ACIPHEX [Suspect]
     Active Substance: RABEPRAZOLE SODIUM
     Indication: BARRETT^S OESOPHAGUS
  2. ACIPHEX [Suspect]
     Active Substance: RABEPRAZOLE SODIUM
     Indication: GASTROOESOPHAGEAL REFLUX DISEASE
     Route: 048
     Dates: end: 2017

REACTIONS (1)
  - Tardive dyskinesia [Not Recovered/Not Resolved]

NARRATIVE: CASE EVENT DATE: 2017
